FAERS Safety Report 5587043-X (Version None)
Quarter: 2008Q1

REPORT INFORMATION
  Report Type: 
  Country: None (occurrence: None)
  Receive Date: 20080110
  Receipt Date: 20080103
  Transmission Date: 20080703
  Serious: Yes (Other)
  Sender: FDA-Public Use
  Company Number: B0360895A

PATIENT
  Age: 25 Year
  Sex: Female

DRUGS (2)
  1. PAROXETINE HYDROCHLORIDE [Suspect]
     Indication: ANXIETY
     Route: 065
     Dates: start: 19981001, end: 20030315
  2. ST JOHNS WORT [Concomitant]
     Route: 065
     Dates: start: 20020501

REACTIONS (17)
  - ANXIETY [None]
  - ASTHENIA [None]
  - BLADDER DISORDER [None]
  - DEPRESSED MOOD [None]
  - DISTURBANCE IN ATTENTION [None]
  - DIZZINESS [None]
  - FATIGUE [None]
  - FEELING ABNORMAL [None]
  - IRRITABILITY [None]
  - LOSS OF LIBIDO [None]
  - MOOD SWINGS [None]
  - MUSCLE TWITCHING [None]
  - PARAESTHESIA [None]
  - PARANOIA [None]
  - SUICIDAL IDEATION [None]
  - VISION BLURRED [None]
  - WITHDRAWAL SYNDROME [None]
